FAERS Safety Report 9012855 (Version 1)
Quarter: 2013Q1

REPORT INFORMATION
  Report Type: Spontaneous
  Country: US (occurrence: US)
  Receive Date: 20130114
  Receipt Date: 20130114
  Transmission Date: 20140127
  Serious: Yes (Hospitalization)
  Sender: FDA-Public Use
  Company Number: US-009507513-1301USA003184

PATIENT
  Age: 51 Year
  Sex: Male

DRUGS (5)
  1. SINGULAIR [Suspect]
     Indication: PROSTATE CANCER
  2. AZD0530 [Suspect]
     Route: 048
  3. LUPRON [Concomitant]
  4. COLACE [Concomitant]
  5. ASPIRIN [Concomitant]

REACTIONS (1)
  - Haemoglobin decreased [Unknown]
